FAERS Safety Report 5817667-3 (Version None)
Quarter: 2008Q3

REPORT INFORMATION
  Report Type: 
  Country: None (occurrence: None)
  Receive Date: 20080722
  Receipt Date: 20080715
  Transmission Date: 20090109
  Serious: Yes (Death)
  Sender: FDA-Public Use
  Company Number: JP-WYE-H05147108

PATIENT
  Sex: Male

DRUGS (3)
  1. ANCARON [Suspect]
     Indication: VENTRICULAR FIBRILLATION
     Dosage: CONCENTRATION OF 7.5 MG/ML, FREQUENCY NOT SPECIFIED
     Route: 040
     Dates: start: 20080407
  2. ANCARON [Suspect]
     Indication: CARDIO-RESPIRATORY ARREST
  3. EPINEPHRINE [Concomitant]
     Route: 041
     Dates: start: 20080407, end: 20080407

REACTIONS (2)
  - CARDIO-RESPIRATORY ARREST [None]
  - VENTRICULAR FIBRILLATION [None]
